FAERS Safety Report 5479671-7 (Version None)
Quarter: 2007Q4

REPORT INFORMATION
  Report Type: 
  Country: None (occurrence: None)
  Receive Date: 20071008
  Receipt Date: 20070925
  Transmission Date: 20080405
  Serious: Yes (Hospitalization)
  Sender: FDA-Public Use
  Company Number: B0489914A

PATIENT
  Age: 73 Year
  Sex: Female

DRUGS (5)
  1. AUGMENTIN '125' [Suspect]
     Route: 048
     Dates: start: 20070222
  2. LEVOTHYROX [Concomitant]
     Indication: HYPERTHYROIDISM
     Route: 048
  3. COAPROVEL [Concomitant]
     Route: 048
  4. GLUCOPHAGE [Concomitant]
     Route: 048
  5. DIAMICRON [Concomitant]
     Route: 048

REACTIONS (2)
  - HYPOKALAEMIA [None]
  - PSEUDOMEMBRANOUS COLITIS [None]
